FAERS Safety Report 11993162 (Version 1)
Quarter: 2016Q1

REPORT INFORMATION
  Report Type: Spontaneous
  Country: US (occurrence: None)
  Receive Date: 20160202
  Receipt Date: 20160202
  Transmission Date: 20160526
  Serious: No
  Sender: FDA-Public Use
  Company Number: None

PATIENT
  Age: 5 Year
  Sex: Male
  Weight: 18.14 kg

DRUGS (1)
  1. AMOXICILLIN/CLAVULANIC ACID 400-57MG/5ML SUSP AUBINDO PHARMA LIMITED/NORTHSTAR [Suspect]
     Active Substance: AMOXICILLIN\CLAVULANIC ACID
     Indication: VIRAL UPPER RESPIRATORY TRACT INFECTION
     Route: 048
     Dates: start: 20160127, end: 20160129

REACTIONS (5)
  - Fatigue [None]
  - Abdominal pain upper [None]
  - Diarrhoea [None]
  - Vomiting [None]
  - Asthenia [None]

NARRATIVE: CASE EVENT DATE: 20160129
